FAERS Safety Report 8424100-4 (Version None)
Quarter: 2012Q2

REPORT INFORMATION
  Report Type: 
  Country: None (occurrence: None)
  Receive Date: 20120608
  Receipt Date: 20110412
  Transmission Date: 20120825
  Serious: No
  Sender: FDA-Public Use
  Company Number: US-ASTRAZENECA-2011SE21265

PATIENT
  Age: 73 Year
  Sex: Female

DRUGS (2)
  1. PULMICORT FLEXHALER [Suspect]
     Dosage: 2 PUFFS,  BID
     Route: 055
     Dates: start: 20110407
  2. PULMICORT FLEXHALER [Suspect]
     Indication: ASTHMA
     Dosage: 180 MCG, BID
     Route: 055
     Dates: start: 20110401

REACTIONS (2)
  - INSOMNIA [None]
  - LUNG DISORDER [None]
